FAERS Safety Report 6088330-1 (Version None)
Quarter: 2009Q1

REPORT INFORMATION
  Report Type: 
  Country: None (occurrence: None)
  Receive Date: 20090224
  Receipt Date: 20090122
  Transmission Date: 20090719
  Serious: No
  Sender: FDA-Public Use
  Company Number: US-BAYER-200911830NA

PATIENT
  Age: 26 Year
  Sex: Female
  Weight: 79 kg

DRUGS (3)
  1. MIRENA [Suspect]
     Indication: CONTRACEPTION
     Route: 015
     Dates: start: 20060201
  2. PAXIL [Concomitant]
     Indication: MOOD ALTERED
  3. ERYTHROMYCIN [Concomitant]

REACTIONS (4)
  - ABDOMINAL PAIN [None]
  - AMENORRHOEA [None]
  - MENORRHAGIA [None]
  - NAUSEA [None]
